FAERS Safety Report 5618686-2 (Version None)
Quarter: 2008Q1

REPORT INFORMATION
  Report Type: 
  Country: None (occurrence: None)
  Receive Date: 20080205
  Receipt Date: 20080205
  Transmission Date: 20080703
  Serious: Yes (Other)
  Sender: FDA-Public Use
  Company Number: None

PATIENT
  Age: 68 Year
  Sex: Female
  Weight: 64.8644 kg

DRUGS (2)
  1. FOSAMAX PLUS D [Suspect]
     Indication: OSTEOPENIA
     Dosage: 70 MG + 2800 IU VITAMIN D ONCE WEEKLY PO
     Route: 048
     Dates: start: 19990101, end: 20080111
  2. FOSAMAX PLUS D [Suspect]
     Indication: OSTEOPOROSIS PROPHYLAXIS
     Dosage: 70 MG + 2800 IU VITAMIN D ONCE WEEKLY PO
     Route: 048
     Dates: start: 19990101, end: 20080111

REACTIONS (4)
  - FEELING HOT [None]
  - INCORRECT DRUG ADMINISTRATION DURATION [None]
  - MUSCULOSKELETAL STIFFNESS [None]
  - PAIN IN JAW [None]
